FAERS Safety Report 19287888 (Version 14)
Quarter: 2023Q2

REPORT INFORMATION
  Report Type: Report from Study
  Country: US (occurrence: US)
  Receive Date: 20210522
  Receipt Date: 20230619
  Transmission Date: 20230722
  Serious: Yes (Hospitalization, Other)
  Sender: FDA-Public Use
  Company Number: NVSC2021US110002

PATIENT
  Sex: Female

DRUGS (2)
  1. COSENTYX [Suspect]
     Active Substance: SECUKINUMAB
     Indication: Product used for unknown indication
     Dosage: 300 MG (2 PEN)
     Route: 058
  2. ENTRESTO [Suspect]
     Active Substance: SACUBITRIL\VALSARTAN
     Indication: Product used for unknown indication
     Dosage: 24.26 MG
     Route: 048

REACTIONS (13)
  - Cardiac failure congestive [Unknown]
  - Psoriatic arthropathy [Unknown]
  - Rheumatoid arthritis [Unknown]
  - Blood pressure decreased [Unknown]
  - Urinary tract infection [Unknown]
  - Psoriasis [Unknown]
  - Osteoporosis [Unknown]
  - Eye infection [Unknown]
  - Haematoma [Unknown]
  - Dizziness [Unknown]
  - Hypotension [Unknown]
  - Hepatic steatosis [Unknown]
  - Sinusitis [Unknown]
